FAERS Safety Report 13476848 (Version 1)
Quarter: 2017Q2

REPORT INFORMATION
  Report Type: Spontaneous
  Country: JP (occurrence: JP)
  Receive Date: 20170425
  Receipt Date: 20170425
  Transmission Date: 20170830
  Serious: Yes (Other)
  Sender: FDA-Public Use
  Company Number: JP-GLAXOSMITHKLINE-JP2017JPN030099

PATIENT
  Sex: Female

DRUGS (4)
  1. TOKI-SHAKUYAKU-SAN [Concomitant]
     Dosage: UNK
  2. RELVAR ELLIPTA [Suspect]
     Active Substance: FLUTICASONE FUROATE\VILANTEROL TRIFENATATE
     Indication: ASTHMA
     Dosage: 200 ?G, QD
     Route: 055
     Dates: start: 20151022
  3. SPIRIVA [Concomitant]
     Active Substance: TIOTROPIUM BROMIDE MONOHYDRATE
     Dosage: UNK
     Dates: start: 20160415, end: 20170216
  4. MONTELUKAST SODIUM. [Concomitant]
     Active Substance: MONTELUKAST SODIUM
     Indication: ASTHMA
     Dosage: 10 MG, QD
     Dates: start: 20161104, end: 20170313

REACTIONS (2)
  - Ectopic pregnancy [Unknown]
  - Exposure during pregnancy [Unknown]
